FAERS Safety Report 18022208 (Version 4)
Quarter: 2020Q4

REPORT INFORMATION
  Report Type: Report from Study
  Country: US (occurrence: US)
  Receive Date: 20200714
  Receipt Date: 20201112
  Transmission Date: 20210113
  Serious: Yes (Other)
  Sender: FDA-Public Use
  Company Number: US-TAKEDA-2020TUS018732

PATIENT
  Age: 67 Year
  Sex: Female

DRUGS (7)
  1. BRIGATINIB [Suspect]
     Active Substance: BRIGATINIB
     Indication: METASTASES TO CENTRAL NERVOUS SYSTEM
     Dosage: 180 MILLIGRAM, QD
     Route: 065
     Dates: start: 20200326
  2. KEPPRA [Concomitant]
     Active Substance: LEVETIRACETAM
     Dosage: UNK
     Route: 065
     Dates: start: 202003
  3. ALLEGRA [Concomitant]
     Active Substance: FEXOFENADINE HYDROCHLORIDE
     Indication: HYPERSENSITIVITY
     Dosage: UNK
     Route: 065
  4. BRIGATINIB [Suspect]
     Active Substance: BRIGATINIB
     Indication: METASTASES TO LUNG
  5. BENADRYL [Concomitant]
     Active Substance: DIPHENHYDRAMINE HYDROCHLORIDE
     Indication: HYPERSENSITIVITY
     Dosage: UNK
     Route: 065
  6. BRIGATINIB [Suspect]
     Active Substance: BRIGATINIB
     Indication: METASTASES TO BONE
  7. BRIGATINIB [Suspect]
     Active Substance: BRIGATINIB
     Indication: NEOPLASM MALIGNANT
     Dosage: 180 MILLIGRAM, QD
     Route: 065
     Dates: start: 20200325, end: 20201016

REACTIONS (7)
  - Cough [Unknown]
  - Hypersensitivity [Unknown]
  - Alveolar lung disease [Unknown]
  - Diarrhoea [Unknown]
  - Rash [Unknown]
  - Vomiting [Not Recovered/Not Resolved]
  - Nausea [Unknown]

NARRATIVE: CASE EVENT DATE: 202003
